FAERS Safety Report 5480426-8 (Version None)
Quarter: 2007Q4

REPORT INFORMATION
  Report Type: 
  Country: None (occurrence: None)
  Receive Date: 20071004
  Receipt Date: 20071004
  Transmission Date: 20080405
  Serious: Yes (Other)
  Sender: FDA-Public Use
  Company Number: None

PATIENT
  Age: 48 Year
  Sex: Male

DRUGS (2)
  1. HYDROCODONE BITARTRATE + ACETAMINOPHEN [Suspect]
     Indication: BACK PAIN
     Dosage: ONE PO Q3HOURS NTE 6/D
     Route: 048
     Dates: start: 20070801, end: 20071001
  2. ACETAMINOPHEN [Concomitant]

REACTIONS (3)
  - ABDOMINAL DISCOMFORT [None]
  - HYPERHIDROSIS [None]
  - NAUSEA [None]
